FAERS Safety Report 25496730 (Version 2)
Quarter: 2025Q3

REPORT INFORMATION
  Report Type: Report from Study
  Country: CL (occurrence: CL)
  Receive Date: 20250701
  Receipt Date: 20250718
  Transmission Date: 20251020
  Serious: Yes (Hospitalization, Other)
  Sender: ABBVIE
  Company Number: CL-ABBVIE-6349683

PATIENT
  Age: 25 Year
  Sex: Female

DRUGS (1)
  1. RINVOQ [Suspect]
     Active Substance: UPADACITINIB
     Indication: Mouth ulceration
     Dosage: RINVOQ 30MG X 30 TABLETS
     Route: 048
     Dates: start: 202502, end: 202504

REACTIONS (6)
  - Surgery [Unknown]
  - Haemorrhage [Recovered/Resolved]
  - Pyrexia [Unknown]
  - Mouth ulceration [Recovered/Resolved]
  - Seizure [Unknown]
  - Therapeutic product effect decreased [Unknown]

NARRATIVE: CASE EVENT DATE: 20250301
